FAERS Safety Report 5171134-1 (Version None)
Quarter: 2006Q4

REPORT INFORMATION
  Report Type: 
  Country: None (occurrence: None)
  Receive Date: 20061213
  Receipt Date: 20061027
  Transmission Date: 20070319
  Serious: Yes (Other)
  Sender: FDA-Public Use
  Company Number: PHBS2006JP16847

PATIENT
  Age: 66 Year
  Sex: Female
  Weight: 49 kg

DRUGS (4)
  1. AREDIA [Suspect]
     Indication: METASTASES TO BONE
     Dosage: 90 MG, UNK
     Route: 042
     Dates: start: 20050322, end: 20051205
  2. ZOMETA [Suspect]
     Indication: METASTASES TO BONE
     Dosage: 4 MG, VIA DRIP INFUSION
     Route: 042
     Dates: start: 20060501, end: 20060911
  3. PACLITAXEL [Concomitant]
     Dosage: 60 MG/D
     Route: 042
     Dates: start: 20051114, end: 20060327
  4. TS 1 [Concomitant]
     Dosage: 100 MG/D
     Route: 048
     Dates: start: 20060410

REACTIONS (5)
  - GINGIVAL EROSION [None]
  - GINGIVAL SWELLING [None]
  - OSTEONECROSIS [None]
  - PURULENCE [None]
  - TOOTHACHE [None]
